FAERS Safety Report 7944725-X (Version None)
Quarter: 2011Q4

REPORT INFORMATION
  Report Type: 
  Country: None (occurrence: None)
  Receive Date: 20111129
  Receipt Date: 20111123
  Transmission Date: 20120403
  Serious: Yes (Other)
  Sender: FDA-Public Use
  Company Number: US-PFIZER INC-2011286767

PATIENT
  Sex: Female
  Weight: 76.644 kg

DRUGS (7)
  1. NEURONTIN [Suspect]
     Indication: NEURALGIA
     Dosage: 100 MG, 3X/DAY
     Route: 048
     Dates: start: 20091101, end: 20110901
  2. LIPITOR [Concomitant]
     Indication: BLOOD CHOLESTEROL INCREASED
     Dosage: UNK
  3. DILTIAZEM [Concomitant]
     Indication: HYPERTENSION
     Dosage: UNK
  4. TRIAMTERENE AND HYDROCHLOROTHIAZIDE [Concomitant]
     Indication: HYPERTENSION
     Dosage: UNK
  5. BENAZEPRIL [Concomitant]
     Indication: HYPERTENSION
     Dosage: UNK
  6. CYMBALTA [Concomitant]
     Indication: BACK PAIN
     Dosage: 60 MG
  7. METOPROLOL [Concomitant]
     Indication: CARDIAC DISORDER
     Dosage: UNK

REACTIONS (10)
  - HYPERHIDROSIS [None]
  - THYROID FUNCTION TEST ABNORMAL [None]
  - IMPAIRED WORK ABILITY [None]
  - NEURALGIA [None]
  - DYSPNOEA EXERTIONAL [None]
  - WITHDRAWAL SYNDROME [None]
  - INSOMNIA [None]
  - WEIGHT INCREASED [None]
  - FATIGUE [None]
  - WEIGHT DECREASED [None]
